FAERS Safety Report 5679554-3 (Version None)
Quarter: 2008Q1

REPORT INFORMATION
  Report Type: 
  Country: None (occurrence: None)
  Receive Date: 20080325
  Receipt Date: 20080317
  Transmission Date: 20080703
  Serious: Yes (Hospitalization)
  Sender: FDA-Public Use
  Company Number: FR-PFIZER INC-2008024160

PATIENT
  Sex: Female

DRUGS (6)
  1. XANAX [Suspect]
     Indication: ANXIETY
     Route: 048
     Dates: start: 20071123, end: 20071128
  2. TIAPRIDAL [Suspect]
     Indication: AGITATION
     Route: 048
     Dates: start: 20071123, end: 20071128
  3. LEPTICUR [Suspect]
     Route: 048
     Dates: start: 20071123, end: 20071128
  4. HALDOL [Suspect]
     Indication: AGITATION
     Route: 048
     Dates: start: 20071123, end: 20071128
  5. MEMANTINE HCL [Concomitant]
  6. FOSAMAX [Concomitant]

REACTIONS (1)
  - TRANSAMINASES INCREASED [None]
